FAERS Safety Report 5674521-8 (Version None)
Quarter: 2008Q2

REPORT INFORMATION
  Report Type: 
  Country: None (occurrence: None)
  Receive Date: 20080303
  Receipt Date: 20070316
  Transmission Date: 20081010
  Serious: Yes (Other)
  Sender: FDA-Public Use
  Company Number: MK-6031375

PATIENT
  Age: 17 Year
  Sex: Male

DRUGS (5)
  1. AMNESTEEM [Suspect]
     Indication: DRUG USE FOR UNKNOWN INDICATION
     Dosage: 20 MG;ORAL ; 40 MG;ORAL
     Route: 048
     Dates: end: 20061122
  2. AMNESTEEM [Suspect]
     Indication: DRUG USE FOR UNKNOWN INDICATION
     Dosage: 20 MG;ORAL ; 40 MG;ORAL
     Route: 048
     Dates: end: 20061122
  3. AMNESTEEM [Suspect]
     Indication: DRUG USE FOR UNKNOWN INDICATION
     Dosage: 20 MG;ORAL ; 40 MG;ORAL
     Route: 048
     Dates: start: 20070104
  4. ACCUTANE [Concomitant]
  5. SOTRET [Concomitant]

REACTIONS (1)
  - BLOOD TRIGLYCERIDES INCREASED [None]
